FAERS Safety Report 17718798 (Version 1)
Quarter: 2020Q2

REPORT INFORMATION
  Report Type: Spontaneous
  Country: DE (occurrence: DE)
  Receive Date: 20200428
  Receipt Date: 20200428
  Transmission Date: 20200714
  Serious: Yes (Hospitalization, Other)
  Sender: FDA-Public Use
  Company Number: DE-BAUSCH-BL-2020-011906

PATIENT
  Sex: Female
  Weight: 73 kg

DRUGS (16)
  1. JAKAVI [Suspect]
     Active Substance: RUXOLITINIB
     Route: 048
     Dates: start: 20190916
  2. JAKAVI [Suspect]
     Active Substance: RUXOLITINIB
     Route: 048
     Dates: start: 20190114, end: 20190828
  3. METOPROLOL SUCCINATE. [Concomitant]
     Active Substance: METOPROLOL SUCCINATE
     Indication: HYPERTENSION
     Route: 048
  4. JAKAVI [Suspect]
     Active Substance: RUXOLITINIB
     Route: 048
     Dates: start: 20181022, end: 20181216
  5. LEUKERAN [Concomitant]
     Active Substance: CHLORAMBUCIL
     Indication: CHRONIC LYMPHOCYTIC LEUKAEMIA
     Route: 048
     Dates: start: 20180118, end: 20180127
  6. ASPIRIN. [Concomitant]
     Active Substance: ASPIRIN
     Indication: PROPHYLAXIS
     Route: 048
     Dates: start: 20080115
  7. NOVALGIN [Concomitant]
     Indication: PAIN
     Route: 048
  8. JAKAVI [Suspect]
     Active Substance: RUXOLITINIB
     Route: 048
     Dates: start: 20171004, end: 20171105
  9. DICLOFENAC [Suspect]
     Active Substance: DICLOFENAC
     Indication: PAIN
     Route: 048
     Dates: start: 20190830, end: 20190920
  10. JAKAVI [Suspect]
     Active Substance: RUXOLITINIB
     Indication: POLYCYTHAEMIA VERA
     Route: 048
     Dates: start: 20180207, end: 20181009
  11. JAKAVI [Suspect]
     Active Substance: RUXOLITINIB
     Route: 048
     Dates: start: 20171115, end: 20171128
  12. FERRO SANOL [Concomitant]
     Active Substance: FERROUS GLYCINE SULFATE
     Indication: IRON DEFICIENCY
     Route: 048
     Dates: start: 20180307, end: 20180425
  13. PANTOPRAZOLE [Concomitant]
     Active Substance: PANTOPRAZOLE
     Indication: PROPHYLAXIS
     Route: 048
  14. JAKAVI [Suspect]
     Active Substance: RUXOLITINIB
     Route: 048
     Dates: start: 20171129, end: 20180116
  15. EPOETIN [Concomitant]
     Active Substance: ERYTHROPOIETIN
     Indication: ERYTHROPOIESIS ABNORMAL
     Dosage: 10000 U
     Route: 058
     Dates: start: 20180926, end: 20181001
  16. VALSARTAN. [Concomitant]
     Active Substance: VALSARTAN
     Indication: HYPERTENSION
     Route: 048

REACTIONS (8)
  - Anaemia [Not Recovered/Not Resolved]
  - Pyrexia [Recovered/Resolved]
  - Splenic rupture [Recovered/Resolved]
  - Renal impairment [Recovered/Resolved]
  - Respiratory tract infection [Recovered/Resolved]
  - Leukocytosis [Recovering/Resolving]
  - Dyspnoea [Recovered/Resolved]
  - Hyperuricaemia [Recovered/Resolved]

NARRATIVE: CASE EVENT DATE: 20171102
